FAERS Safety Report 13674834 (Version 2)
Quarter: 2018Q2

REPORT INFORMATION
  Report Type: Spontaneous
  Country: US (occurrence: US)
  Receive Date: 20170621
  Receipt Date: 20180515
  Transmission Date: 20180711
  Serious: No
  Sender: FDA-Public Use
  Company Number: US-PFIZER INC-2017267725

PATIENT
  Age: 50 Year
  Sex: Female

DRUGS (2)
  1. SOMAVERT [Suspect]
     Active Substance: PEGVISOMANT
     Dosage: 15 MG, DAILY (INJECT 15 MG UNDER THE SKIN)
     Route: 058
     Dates: end: 201702
  2. SOMAVERT [Suspect]
     Active Substance: PEGVISOMANT
     Indication: ACROMEGALY
     Dosage: 20 MG, DAILY (20MG X 7 DAYS /WK)
     Dates: start: 201701

REACTIONS (1)
  - Hepatic enzyme increased [Unknown]
